FAERS Safety Report 6055669-5 (Version None)
Quarter: 2009Q1

REPORT INFORMATION
  Report Type: 
  Country: None (occurrence: None)
  Receive Date: 20090128
  Receipt Date: 20090120
  Transmission Date: 20090719
  Serious: Yes (Hospitalization, Other)
  Sender: FDA-Public Use
  Company Number: FR-ELI_LILLY_AND_COMPANY-FR200810005761

PATIENT
  Age: 59 Year
  Sex: Female
  Weight: 69 kg

DRUGS (12)
  1. ALIMTA [Suspect]
     Indication: LUNG ADENOCARCINOMA
     Dosage: 500 MG/M2, UNKNOWN
     Route: 042
     Dates: start: 20081002
  2. FOLIC ACID [Concomitant]
     Indication: VITAMIN SUPPLEMENTATION
     Dosage: UNK, UNKNOWN
     Route: 065
  3. VITAMIN B-12 [Concomitant]
     Indication: VITAMIN SUPPLEMENTATION
     Dosage: UNK, UNKNOWN
     Route: 065
  4. PREDNISONE [Concomitant]
     Indication: PROPHYLAXIS
     Dosage: UNK, UNKNOWN
     Route: 065
  5. EMEND [Concomitant]
     Indication: VOMITING
  6. METHYLPREDNISOLONE [Concomitant]
     Indication: VOMITING
  7. ZOPHREN [Concomitant]
     Indication: VOMITING
  8. LYTOS [Concomitant]
     Indication: METASTASES TO BONE
     Dates: start: 20060101
  9. DUPHALAC [Concomitant]
     Indication: CONSTIPATION
     Dates: start: 20060101
  10. PREVISCAN [Concomitant]
     Indication: PULMONARY EMBOLISM
     Dates: start: 20060101
  11. DURAGESIC-100 [Concomitant]
     Indication: ANALGESIA
     Dates: start: 20081002, end: 20081013
  12. GRANOCYTE [Concomitant]
     Indication: PROPHYLAXIS
     Dates: start: 20081023

REACTIONS (7)
  - ALANINE AMINOTRANSFERASE INCREASED [None]
  - ASPARTATE AMINOTRANSFERASE INCREASED [None]
  - BLOOD ALKALINE PHOSPHATASE INCREASED [None]
  - BONE MARROW FAILURE [None]
  - ERYSIPELAS [None]
  - FEBRILE BONE MARROW APLASIA [None]
  - GAMMA-GLUTAMYLTRANSFERASE INCREASED [None]
